FAERS Safety Report 14471481 (Version 1)
Quarter: 2018Q1

REPORT INFORMATION
  Report Type: Spontaneous
  Country: US (occurrence: US)
  Receive Date: 20180131
  Receipt Date: 20180131
  Transmission Date: 20180509
  Serious: No
  Sender: FDA-Public Use
  Company Number: US-SHIRE-US201802137

PATIENT
  Age: 76 Year
  Sex: Female
  Weight: 44.44 kg

DRUGS (1)
  1. XIIDRA [Suspect]
     Active Substance: LIFITEGRAST
     Indication: DRY EYE
     Dosage: 5 %, 2X/DAY:BID
     Route: 047
     Dates: start: 20180102, end: 20180105

REACTIONS (3)
  - Instillation site pain [Recovered/Resolved]
  - Drug ineffective [Recovered/Resolved]
  - Instillation site reaction [Recovered/Resolved]

NARRATIVE: CASE EVENT DATE: 201801
